FAERS Safety Report 24786801 (Version 1)
Quarter: 2024Q4

REPORT INFORMATION
  Report Type: Spontaneous
  Country: US (occurrence: US)
  Receive Date: 20241230
  Receipt Date: 20241230
  Transmission Date: 20250115
  Serious: No
  Sender: AMGEN
  Company Number: US-AMGEN-USASP2024251555

PATIENT
  Sex: Female

DRUGS (1)
  1. REPATHA [Suspect]
     Active Substance: EVOLOCUMAB
     Indication: Blood cholesterol increased
     Dosage: 140 MILLIGRAM
     Route: 065

REACTIONS (5)
  - Vocal cord thickening [Recovering/Resolving]
  - Pharyngitis [Recovering/Resolving]
  - Fatigue [Unknown]
  - Rash [Unknown]
  - Back pain [Unknown]

NARRATIVE: CASE EVENT DATE: 20241201
